FAERS Safety Report 9173668 (Version 1)
Quarter: 2013Q1

REPORT INFORMATION
  Report Type: Spontaneous
  Country: US (occurrence: None)
  Receive Date: 20130313
  Receipt Date: 20130313
  Transmission Date: 20140127
  Serious: No
  Sender: FDA-Public Use
  Company Number: AEUSA201200442

PATIENT
  Age: 71 Year
  Sex: Male
  Weight: 84.37 kg

DRUGS (5)
  1. PROLASTIN-C [Suspect]
     Indication: ALPHA-1 ANTI-TRYPSIN DEFICIENCY
     Route: 042
     Dates: start: 20120829
  2. OMEPRAZOLE [Concomitant]
  3. MUCONEX [Concomitant]
  4. ALBUTEROL SULFATE [Concomitant]
  5. MONETASONE FUROATE [Concomitant]

REACTIONS (3)
  - Tremor [None]
  - Dyspnoea [None]
  - Back pain [None]
